FAERS Safety Report 18802066 (Version 1)
Quarter: 2021Q1

REPORT INFORMATION
  Report Type: Spontaneous
  Country: RU (occurrence: RU)
  Receive Date: 20210128
  Receipt Date: 20210128
  Transmission Date: 20210419
  Serious: Yes (Other)
  Sender: FDA-Public Use
  Company Number: RU-GLAXOSMITHKLINE-RU2019EME140037

PATIENT
  Age: 41 Year
  Sex: Female

DRUGS (2)
  1. FEXADIN (FENOVERINE) [Suspect]
     Active Substance: FENOVERINE
     Indication: ANTIALLERGIC THERAPY
     Dosage: UNK
  2. RELVARE [Suspect]
     Active Substance: FLUTICASONE FUROATE\VILANTEROL TRIFENATATE
     Indication: ASTHMA
     Dosage: UNK UNK, QD, 22/184
     Dates: start: 2019

REACTIONS (4)
  - Illness [Unknown]
  - Breast pain [Unknown]
  - Invasive ductal breast carcinoma [Unknown]
  - Breast disorder [Unknown]
